FAERS Safety Report 9331294 (Version 3)
Quarter: 2013Q3

REPORT INFORMATION
  Report Type: Report from Study
  Country: JP (occurrence: JP)
  Receive Date: 20130605
  Receipt Date: 20130704
  Transmission Date: 20140515
  Serious: Yes (Hospitalization)
  Sender: FDA-Public Use
  Company Number: JP-PFIZER INC-2013166511

PATIENT
  Age: 48 Year
  Sex: Female
  Weight: 57 kg

DRUGS (6)
  1. XALKORI [Suspect]
     Indication: NON-SMALL CELL LUNG CANCER
     Dosage: 250 MG, 2X/DAY
     Route: 048
     Dates: start: 20130315, end: 20130326
  2. DECADRON [Concomitant]
     Dosage: 2 MG, 2X/DAY
     Route: 048
     Dates: start: 20130316, end: 20130318
  3. CODEINE PHOSPHATE [Concomitant]
     Dosage: 20 MG, 3X/DAY
     Route: 048
     Dates: start: 20130317
  4. PRIMPERAN [Concomitant]
     Dosage: 5 MG, 3X/DAY
     Route: 048
     Dates: start: 20130322, end: 20130329
  5. MAGMITT [Concomitant]
     Dosage: 500 MG, 3X/DAY
     Route: 048
     Dates: start: 20130326, end: 20130330
  6. SENNAL [Concomitant]
     Dosage: 24 MG, AS NEEDED
     Route: 048
     Dates: start: 20130326, end: 20130326

REACTIONS (1)
  - Rash maculo-papular [Recovered/Resolved]
